FAERS Safety Report 19577640 (Version 2)
Quarter: 2021Q3

REPORT INFORMATION
  Report Type: Spontaneous
  Country: BE (occurrence: BE)
  Receive Date: 20210719
  Receipt Date: 20210728
  Transmission Date: 20211014
  Serious: Yes (Other)
  Sender: FDA-Public Use
  Company Number: BE-ROCHE-2871304

PATIENT
  Age: 40 Year
  Sex: Male
  Weight: 92.7 kg

DRUGS (2)
  1. VALCYTE [Suspect]
     Active Substance: VALGANCICLOVIR HYDROCHLORIDE
     Indication: PRODUCT USED FOR UNKNOWN INDICATION
     Dosage: 450 MG? 60 TABLETS?RECOMMENDED ADULT DOSE= 2 TABLET BID UNTIL PCR? NEG, THEN 1 TABLET BID FOR 1 WEEK
     Route: 065
     Dates: start: 20201022, end: 20201104
  2. VALCYTE [Suspect]
     Active Substance: VALGANCICLOVIR HYDROCHLORIDE
     Dosage: 450 MG? 60 TABLETS?RECOMMENDED ADULT DOSE= 2 TABLET BID UNTIL PCR? NEG, THEN 1 TABLET BID FOR 1 WEEK
     Route: 065
     Dates: start: 20210302, end: 20210330

REACTIONS (2)
  - Chronic graft versus host disease [Unknown]
  - Cytomegalovirus infection reactivation [Unknown]

NARRATIVE: CASE EVENT DATE: 20201022
